FAERS Safety Report 16146307 (Version 3)
Quarter: 2019Q2

REPORT INFORMATION
  Report Type: Spontaneous
  Country: US (occurrence: US)
  Receive Date: 20190402
  Receipt Date: 20190423
  Transmission Date: 20190711
  Serious: Yes (Hospitalization)
  Sender: FDA-Public Use
  Company Number: US-TEVA-2019-US-1034263

PATIENT
  Age: 29 Year
  Sex: Female
  Weight: 82 kg

DRUGS (1)
  1. AJOVY [Suspect]
     Active Substance: FREMANEZUMAB-VFRM
     Indication: MIGRAINE
     Route: 065
     Dates: start: 20190326

REACTIONS (10)
  - Rash erythematous [Recovered/Resolved]
  - White blood cell count increased [Unknown]
  - Gait inability [Unknown]
  - Migraine [Not Recovered/Not Resolved]
  - Hemiplegia [Not Recovered/Not Resolved]
  - Rash [Recovered/Resolved]
  - Vomiting [Unknown]
  - Pruritus [Recovered/Resolved]
  - Blister [Recovered/Resolved]
  - Pruritus generalised [Recovered/Resolved]

NARRATIVE: CASE EVENT DATE: 20190327
